FAERS Safety Report 7392010-X (Version None)
Quarter: 2011Q2

REPORT INFORMATION
  Report Type: 
  Country: None (occurrence: None)
  Receive Date: 20110404
  Receipt Date: 20110324
  Transmission Date: 20111010
  Serious: Yes (Life-Threatening, Other)
  Sender: FDA-Public Use
  Company Number: US-ENDO PHARMACEUTICALS INC.-OPER20110043

PATIENT
  Sex: Male

DRUGS (3)
  1. BYSTOLIC [Concomitant]
  2. CLONAZEPAM [Concomitant]
     Indication: MIGRAINE
     Dosage: 1 MG
  3. OPANA ER [Suspect]
     Indication: PAIN

REACTIONS (3)
  - DRUG ABUSE [None]
  - WRONG TECHNIQUE IN DRUG USAGE PROCESS [None]
  - INCORRECT ROUTE OF DRUG ADMINISTRATION [None]
